FAERS Safety Report 22181065 (Version 1)
Quarter: 2023Q2

REPORT INFORMATION
  Report Type: Spontaneous
  Country: GB (occurrence: GB)
  Receive Date: 20230406
  Receipt Date: 20230406
  Transmission Date: 20230722
  Serious: Yes (Other)
  Sender: FDA-Public Use
  Company Number: GB-MHRA-MED-202303311041352030-MQVCN

PATIENT
  Age: 71 Year
  Sex: Female
  Weight: 124 kg

DRUGS (4)
  1. INDAPAMIDE [Suspect]
     Active Substance: INDAPAMIDE
     Indication: Hypertension
     Dosage: 1.5 MILLIGRAM (1.5MG)
     Route: 065
     Dates: start: 20230311, end: 20230314
  2. INDAPAMIDE [Suspect]
     Active Substance: INDAPAMIDE
     Indication: Fluid retention
  3. AMLODIPINE [Concomitant]
     Active Substance: AMLODIPINE BESYLATE
     Indication: Hypertension
     Dosage: UNK
     Route: 065
     Dates: start: 20230128
  4. OMEPRAZOLE [Concomitant]
     Active Substance: OMEPRAZOLE
     Indication: Adverse drug reaction
     Dosage: UNK (AS A PPI)
     Route: 065
     Dates: start: 20230210

REACTIONS (6)
  - Muscular weakness [Recovered/Resolved]
  - Palpitations [Recovered/Resolved]
  - Lip swelling [Recovered/Resolved]
  - Chromaturia [Recovered/Resolved]
  - Fatigue [Recovered/Resolved]
  - Dry mouth [Recovered/Resolved]

NARRATIVE: CASE EVENT DATE: 20230313
